FAERS Safety Report 10771568 (Version 1)
Quarter: 2015Q1

REPORT INFORMATION
  Report Type: Spontaneous
  Country: US (occurrence: US)
  Receive Date: 20150206
  Receipt Date: 20150206
  Transmission Date: 20150721
  Serious: No
  Sender: FDA-Public Use
  Company Number: US-ASTRAZENECA-2014SE21124

PATIENT
  Sex: Female

DRUGS (20)
  1. HYDROCHLORATE [Concomitant]
  2. ATENOLOL. [Suspect]
     Active Substance: ATENOLOL
     Indication: BLOOD PRESSURE ABNORMAL
     Dosage: 25MG IN MORNING AND 50MG AT NIGHT, DAILY
     Route: 065
  3. CALCIUM [Concomitant]
     Active Substance: CALCIUM
     Indication: VITAMIN SUPPLEMENTATION
  4. FLUTICASONE [Concomitant]
     Active Substance: FLUTICASONE\FLUTICASONE PROPIONATE
  5. BENADRYL [Concomitant]
     Active Substance: DIPHENHYDRAMINE HYDROCHLORIDE
     Indication: SINUSITIS
  6. VITAMIN D [Concomitant]
     Active Substance: CHOLECALCIFEROL
     Indication: VITAMIN SUPPLEMENTATION
  7. BABY ASPIRIN [Concomitant]
     Active Substance: ASPIRIN
  8. SYMBICORT [Suspect]
     Active Substance: BUDESONIDE\FORMOTEROL FUMARATE DIHYDRATE
     Indication: CHRONIC OBSTRUCTIVE PULMONARY DISEASE
     Dosage: 160/4.5UG, 2 PUFFS BID
     Route: 055
     Dates: start: 2013, end: 2013
  9. AMLODIPINE [Concomitant]
     Active Substance: AMLODIPINE BESYLATE
     Indication: BLOOD PRESSURE ABNORMAL
  10. PRO AIR 108 [Concomitant]
  11. SPIRIVA [Concomitant]
     Active Substance: TIOTROPIUM BROMIDE MONOHYDRATE
     Indication: CHRONIC OBSTRUCTIVE PULMONARY DISEASE
  12. GLIPIZIDE. [Concomitant]
     Active Substance: GLIPIZIDE
     Indication: DIABETES MELLITUS
  13. LOSARTAN [Concomitant]
     Active Substance: LOSARTAN
     Indication: BLOOD PRESSURE ABNORMAL
  14. DICYCLOMINE [Concomitant]
     Active Substance: DICYCLOMINE HYDROCHLORIDE
     Indication: DIARRHOEA
  15. PROBIOTIC [Concomitant]
     Active Substance: PROBIOTICS NOS
     Indication: CYSTITIS
  16. ACETAMINOPHEN + CODEINE [Concomitant]
     Indication: ARTHRALGIA
  17. CRANBERRY. [Concomitant]
     Active Substance: CRANBERRY
     Indication: VITAMIN SUPPLEMENTATION
  18. DIAZEPAM. [Concomitant]
     Active Substance: DIAZEPAM
  19. SYMBICORT [Suspect]
     Active Substance: BUDESONIDE\FORMOTEROL FUMARATE DIHYDRATE
     Indication: CHRONIC OBSTRUCTIVE PULMONARY DISEASE
     Dosage: 80/4.5UG, 2 PUFFS BID
     Route: 055
     Dates: start: 2014
  20. PRAVASTATIN [Concomitant]
     Active Substance: PRAVASTATIN\PRAVASTATIN SODIUM

REACTIONS (4)
  - Body height decreased [Not Recovered/Not Resolved]
  - Drug dose omission [Unknown]
  - Intentional product misuse [Unknown]
  - Drug intolerance [Unknown]
